FAERS Safety Report 5026909-6 (Version None)
Quarter: 2006Q2

REPORT INFORMATION
  Report Type: 
  Country: None (occurrence: None)
  Receive Date: 20060609
  Receipt Date: 20060602
  Transmission Date: 20061013
  Serious: Yes (Death, Life-Threatening, Hospitalization)
  Sender: FDA-Public Use
  Company Number: HQWYE799212APR06

PATIENT
  Age: 56 Year
  Sex: Male

DRUGS (3)
  1. ANCARON (AMIODARONE, TABLET) [Suspect]
     Indication: CARDIAC FAILURE
     Dosage: 100 MG 1X PER 1 DAY, ORAL
     Route: 048
     Dates: start: 20041001, end: 20060401
  2. ANCARON (AMIODARONE, TABLET) [Suspect]
     Indication: RENAL FAILURE
     Dosage: 100 MG 1X PER 1 DAY, ORAL
     Route: 048
     Dates: start: 20041001, end: 20060401
  3. ANCARON (AMIODARONE, TABLET) [Suspect]
     Indication: VENTRICULAR ARRHYTHMIA
     Dosage: 100 MG 1X PER 1 DAY, ORAL
     Route: 048
     Dates: start: 20041001, end: 20060401

REACTIONS (11)
  - CARDIAC FAILURE [None]
  - CARDIOACTIVE DRUG LEVEL ABOVE THERAPEUTIC [None]
  - CEREBRAL ARTERY EMBOLISM [None]
  - CEREBRAL INFARCTION [None]
  - CONDITION AGGRAVATED [None]
  - DRUG INEFFECTIVE [None]
  - INFECTION [None]
  - INTERSTITIAL LUNG DISEASE [None]
  - NONSPECIFIC REACTION [None]
  - PARALYSIS [None]
  - PULMONARY CONGESTION [None]
